FAERS Safety Report 21174600 (Version 1)
Quarter: 2022Q3

REPORT INFORMATION
  Report Type: Report from Study
  Country: DO (occurrence: DO)
  Receive Date: 20220805
  Receipt Date: 20220805
  Transmission Date: 20221027
  Serious: Yes (Disabling, Other)
  Sender: FDA-Public Use
  Company Number: DO-ABBVIE-22K-279-4492987-00

PATIENT
  Age: 44 Year
  Sex: Female
  Weight: 66 kg

DRUGS (2)
  1. HUMIRA [Suspect]
     Active Substance: ADALIMUMAB
     Indication: Rheumatoid arthritis
     Route: 058
     Dates: start: 20200220, end: 20220718
  2. OMEPRAZOLE [Concomitant]
     Active Substance: OMEPRAZOLE
     Indication: Product used for unknown indication
     Dosage: 1 EVERY 8 HOURS OR 2 A DAY OR BETWEEN MEALS
     Route: 048
     Dates: start: 2018

REACTIONS (17)
  - Tibia fracture [Not Recovered/Not Resolved]
  - Tendon rupture [Not Recovered/Not Resolved]
  - Nerve injury [Not Recovered/Not Resolved]
  - Meniscus injury [Not Recovered/Not Resolved]
  - Lower limb fracture [Unknown]
  - Ankle fracture [Not Recovered/Not Resolved]
  - Lower limb fracture [Not Recovered/Not Resolved]
  - Foot fracture [Not Recovered/Not Resolved]
  - Osteoarthritis [Not Recovered/Not Resolved]
  - Arthropathy [Not Recovered/Not Resolved]
  - Illness [Unknown]
  - Osteoporosis [Not Recovered/Not Resolved]
  - Inflammation [Not Recovered/Not Resolved]
  - Post procedural complication [Unknown]
  - Pain [Not Recovered/Not Resolved]
  - Hypersensitivity [Unknown]
  - Arthralgia [Unknown]

NARRATIVE: CASE EVENT DATE: 20211101
